FAERS Safety Report 6476413-3 (Version None)
Quarter: 2009Q4

REPORT INFORMATION
  Report Type: 
  Country: None (occurrence: None)
  Receive Date: 20091207
  Receipt Date: 20091124
  Transmission Date: 20100525
  Serious: Yes (Hospitalization)
  Sender: FDA-Public Use
  Company Number: US-BIOGENIDEC-2009BI027353

PATIENT
  Age: 63 Year
  Sex: Female

DRUGS (2)
  1. TYSABRI [Suspect]
     Indication: MULTIPLE SCLEROSIS
     Route: 042
     Dates: start: 20041208, end: 20050201
  2. TYSABRI [Suspect]
     Route: 042
     Dates: start: 20080513, end: 20090630

REACTIONS (3)
  - ASTHENIA [None]
  - MITRAL VALVE INCOMPETENCE [None]
  - NIGHT SWEATS [None]
